FAERS Safety Report 5270191-1 (Version None)
Quarter: 2007Q1

REPORT INFORMATION
  Report Type: 
  Country: None (occurrence: None)
  Receive Date: 20070320
  Receipt Date: 20070308
  Transmission Date: 20070707
  Serious: Yes (Other)
  Sender: FDA-Public Use
  Company Number: US-SANOFI-SYNTHELABO-A03200701918

PATIENT
  Age: 65 Year
  Sex: Female

DRUGS (7)
  1. HYDROXYCHLOROQUINE SULFATE [Suspect]
     Indication: SYSTEMIC LUPUS ERYTHEMATOSUS
     Route: 048
  2. DUCOSATE SODIUM [Concomitant]
     Dosage: UNK
     Route: 048
  3. DILTIAZEM [Concomitant]
     Dosage: UNK
     Route: 048
  4. LANSOPRAZOLE [Concomitant]
     Dosage: UNK
     Route: 048
  5. CALCIUM [Concomitant]
     Dosage: UNK
     Route: 048
  6. ALENDRONATE SODIUM [Concomitant]
     Dosage: UNK
     Route: 048
  7. INDOMETHACIN [Concomitant]
     Dosage: UNK
     Route: 048

REACTIONS (2)
  - MYELODYSPLASTIC SYNDROME [None]
  - REFRACTORY ANAEMIA [None]
